FAERS Safety Report 24719475 (Version 1)
Quarter: 2024Q4

REPORT INFORMATION
  Report Type: Spontaneous
  Country: US (occurrence: US)
  Receive Date: 20241211
  Receipt Date: 20241211
  Transmission Date: 20250114
  Serious: No
  Sender: ROCHE
  Company Number: US-ROCHE-10000152997

PATIENT
  Age: 54 Year

DRUGS (1)
  1. ACTEMRA ACTPEN [Suspect]
     Active Substance: TOCILIZUMAB
     Indication: Rheumatoid arthritis
     Dosage: 1 INJECTION SUBQ ONCE EVERY 2 WEEKS.?STRENGTH: 162 MG/0.9 MLL
     Route: 058

REACTIONS (1)
  - Arthritis [Unknown]
